FAERS Safety Report 7783877-1 (Version None)
Quarter: 2011Q3

REPORT INFORMATION
  Report Type: 
  Country: None (occurrence: None)
  Receive Date: 20110928
  Receipt Date: 20110915
  Transmission Date: 20111222
  Serious: Yes (Hospitalization)
  Sender: FDA-Public Use
  Company Number: US-GLAXOSMITHKLINE-A0944796A

PATIENT
  Age: 53 Year
  Sex: Male

DRUGS (4)
  1. WELLBUTRIN SR [Suspect]
     Indication: AFFECTIVE DISORDER
     Dosage: 200MG TWICE PER DAY
     Route: 048
     Dates: start: 20110101
  2. KLONOPIN [Concomitant]
  3. GEODON [Concomitant]
  4. AMBIEN [Concomitant]

REACTIONS (6)
  - NIGHTMARE [None]
  - ANXIETY [None]
  - SLEEP DISORDER [None]
  - INSOMNIA [None]
  - TREMOR [None]
  - FEELING ABNORMAL [None]
